FAERS Safety Report 5477136-X (Version None)
Quarter: 2007Q4

REPORT INFORMATION
  Report Type: 
  Country: None (occurrence: None)
  Receive Date: 20071004
  Receipt Date: 20071002
  Transmission Date: 20080405
  Serious: Yes (Hospitalization)
  Sender: FDA-Public Use
  Company Number: A0685267A

PATIENT
  Age: 36 Year
  Sex: Female

DRUGS (2)
  1. ALLI [Suspect]
     Dates: start: 20070601, end: 20070908
  2. NO CONCURRENT MEDICATION [Concomitant]

REACTIONS (7)
  - ABDOMINAL PAIN [None]
  - ABDOMINAL PAIN UPPER [None]
  - BILE DUCT OBSTRUCTION [None]
  - CHOLELITHIASIS [None]
  - CONSTIPATION [None]
  - HEPATIC ENZYME INCREASED [None]
  - INCISION SITE PAIN [None]
